FAERS Safety Report 21573787 (Version 11)
Quarter: 2025Q3

REPORT INFORMATION
  Report Type: Report from Study
  Country: US (occurrence: US)
  Receive Date: 20221109
  Receipt Date: 20250712
  Transmission Date: 20251020
  Serious: Yes (Hospitalization, Other)
  Sender: TAKEDA
  Company Number: US-TAKEDA-US202022763

PATIENT
  Age: 64 Year
  Sex: Female
  Weight: 48 kg

DRUGS (36)
  1. HUMAN IMMUNOGLOBULIN G\HYALURONIDASE RECOMBINANT HUMAN [Suspect]
     Active Substance: HUMAN IMMUNOGLOBULIN G\HYALURONIDASE (HUMAN RECOMBINANT)
     Indication: Primary immunodeficiency syndrome
     Dosage: 30 GRAM, Q4WEEKS
     Dates: start: 20220823
  2. HUMAN IMMUNOGLOBULIN G\HYALURONIDASE RECOMBINANT HUMAN [Suspect]
     Active Substance: HUMAN IMMUNOGLOBULIN G\HYALURONIDASE (HUMAN RECOMBINANT)
     Indication: Parkinson^s disease
     Dosage: 30 GRAM, Q4WEEKS
  3. HUMAN IMMUNOGLOBULIN G\HYALURONIDASE RECOMBINANT HUMAN [Suspect]
     Active Substance: HUMAN IMMUNOGLOBULIN G\HYALURONIDASE (HUMAN RECOMBINANT)
     Indication: Immunodeficiency common variable
  4. HUMAN IMMUNOGLOBULIN G\HYALURONIDASE RECOMBINANT HUMAN [Suspect]
     Active Substance: HUMAN IMMUNOGLOBULIN G\HYALURONIDASE (HUMAN RECOMBINANT)
     Indication: Immunodeficiency
     Dosage: 30 GRAM, Q4WEEKS
  5. HUMAN IMMUNOGLOBULIN G\HYALURONIDASE RECOMBINANT HUMAN [Suspect]
     Active Substance: HUMAN IMMUNOGLOBULIN G\HYALURONIDASE (HUMAN RECOMBINANT)
     Dosage: UNK, Q4WEEKS
  6. ACETAMINOPHEN [Concomitant]
     Active Substance: ACETAMINOPHEN
  7. DIPHENHYDRAMINE [Concomitant]
     Active Substance: DIPHENHYDRAMINE
  8. SODIUM CHLORIDE [Concomitant]
     Active Substance: SODIUM CHLORIDE
  9. EPINEPHRINE [Concomitant]
     Active Substance: EPINEPHRINE
  10. Lmx [Concomitant]
  11. KRILL OIL [Concomitant]
     Active Substance: DIETARY SUPPLEMENT\KRILL OIL
  12. METHOTREXATE [Concomitant]
     Active Substance: METHOTREXATE
  13. HYDROXYCHLOROQUINE [Concomitant]
     Active Substance: HYDROXYCHLOROQUINE
  14. FOLIC ACID [Concomitant]
     Active Substance: FOLIC ACID
  15. NEXIUM [Concomitant]
     Active Substance: ESOMEPRAZOLE MAGNESIUM
     Indication: Gastrooesophageal reflux disease
  16. NEXIUM [Concomitant]
     Active Substance: ESOMEPRAZOLE MAGNESIUM
     Dosage: 40 MILLIGRAM, BID
  17. ZINC [Concomitant]
     Active Substance: ZINC
  18. LINZESS [Concomitant]
     Active Substance: LINACLOTIDE
  19. CYCLOBENZAPRINE [Concomitant]
     Active Substance: CYCLOBENZAPRINE
  20. VITAMIN C [Concomitant]
     Active Substance: ASCORBIC ACID
  21. VITAMIN D3 [Concomitant]
     Active Substance: CHOLECALCIFEROL
  22. MELOXICAM [Concomitant]
     Active Substance: MELOXICAM
  23. DEXAMETHASONE\NEOMYCIN SULFATE\POLYMYXIN B SULFATE [Concomitant]
     Active Substance: DEXAMETHASONE\NEOMYCIN SULFATE\POLYMYXIN B SULFATE
  24. BACLOFEN [Concomitant]
     Active Substance: BACLOFEN
  25. XYZAL [Concomitant]
     Active Substance: LEVOCETIRIZINE DIHYDROCHLORIDE
     Indication: Multiple allergies
     Dosage: UNK UNK, QD
  26. HERBALS\TURMERIC [Concomitant]
     Active Substance: HERBALS\TURMERIC
  27. DIPHENHYDRAMINE HYDROCHLORIDE [Concomitant]
     Active Substance: DIPHENHYDRAMINE HYDROCHLORIDE
  28. CYCLOBENZAPRINE HYDROCHLORIDE [Concomitant]
     Active Substance: CYCLOBENZAPRINE HYDROCHLORIDE
  29. HYDROXYCHLOROQUINE SULFATE [Concomitant]
     Active Substance: HYDROXYCHLOROQUINE SULFATE
  30. FLUTICASONE FUROATE\SALMETEROL XINAFOATE [Concomitant]
     Active Substance: FLUTICASONE FUROATE\SALMETEROL XINAFOATE
  31. ALBUTEROL [Concomitant]
     Active Substance: ALBUTEROL
     Indication: Asthma
  32. AZELASTINE [Concomitant]
     Active Substance: AZELASTINE
     Indication: Multiple allergies
  33. AZELASTINE [Concomitant]
     Active Substance: AZELASTINE
     Dosage: UNK, BID
  34. PLAQUENIL [Concomitant]
     Active Substance: HYDROXYCHLOROQUINE SULFATE
     Dosage: UNK UNK, QD
  35. MOBIC [Concomitant]
     Active Substance: MELOXICAM
     Dosage: UNK UNK, QD
  36. AIRSUPRA [Concomitant]
     Active Substance: ALBUTEROL SULFATE\BUDESONIDE
     Indication: Asthma

REACTIONS (14)
  - COVID-19 [Recovered/Resolved]
  - Osteoarthritis [Unknown]
  - Fall [Recovered/Resolved]
  - Femur fracture [Recovered/Resolved]
  - Device infusion issue [Unknown]
  - Incorrect drug administration rate [Unknown]
  - Insurance issue [Unknown]
  - Infusion site rash [Unknown]
  - Sinusitis [Recovered/Resolved]
  - Feeling abnormal [Unknown]
  - Product use issue [Unknown]
  - Inappropriate schedule of product administration [Unknown]
  - Asthenia [Unknown]
  - Fatigue [Unknown]

NARRATIVE: CASE EVENT DATE: 20240625
